FAERS Safety Report 5010283-5 (Version None)
Quarter: 2006Q2

REPORT INFORMATION
  Report Type: 
  Country: None (occurrence: None)
  Receive Date: 20060404
  Receipt Date: 20060303
  Transmission Date: 20061013
  Serious: Yes (Other)
  Sender: FDA-Public Use
  Company Number: US200512004508

PATIENT
  Age: 38 Year
  Sex: Female
  Weight: 63.5 kg

DRUGS (5)
  1. ZYPREXA [Suspect]
     Indication: NIGHTMARE
     Dosage: 10 MG, DAILY (1/D),
     Dates: start: 20050101, end: 20051101
  2. CYMBALTA [Suspect]
     Indication: DEPRESSION
     Dosage: 90 MG, DAILY (1/D),
     Dates: start: 20051101
  3. KLONOPIN [Concomitant]
  4. GEODON [Concomitant]
  5. ESZOPICLONE (ESZOPICLONE) [Concomitant]

REACTIONS (10)
  - DEPRESSION [None]
  - DRUG INEFFECTIVE [None]
  - DRUG WITHDRAWAL SYNDROME [None]
  - FEELING ABNORMAL [None]
  - INFLUENZA LIKE ILLNESS [None]
  - LETHARGY [None]
  - NAUSEA [None]
  - SUICIDAL IDEATION [None]
  - TENSION [None]
  - WEIGHT INCREASED [None]
